FAERS Safety Report 8889069 (Version 1)
Quarter: 2012Q4

REPORT INFORMATION
  Report Type: 
  Country: DE (occurrence: DE)
  Receive Date: 20121106
  Receipt Date: 20121106
  Transmission Date: 20130627
  Serious: Yes (Hospitalization)
  Sender: FDA-Public Use
  Company Number: DE-B.I. PHARMACEUTICALS,INC./RIDGEFIELD-2012-EU-05447GD

PATIENT
  Age: 77 Year
  Sex: Male

DRUGS (7)
  1. DABIGATRAN ETEXILATE [Suspect]
     Indication: ATRIAL FIBRILLATION
     Dosage: 150 mg
  2. METOPROLOL [Concomitant]
     Indication: CARDIAC FAILURE
  3. RAMIPRIL [Concomitant]
     Indication: CARDIAC FAILURE
  4. SPIRONOLACTONE [Concomitant]
     Indication: CARDIAC FAILURE
  5. TORASEMIDE [Concomitant]
     Indication: CARDIAC FAILURE
  6. METFORMIN [Concomitant]
     Indication: CARDIAC FAILURE
  7. DIGOXIN [Concomitant]
     Indication: CARDIAC FAILURE

REACTIONS (4)
  - Cardiac failure congestive [Recovered/Resolved]
  - Activated partial thromboplastin time prolonged [Recovered/Resolved]
  - Haematoma [Unknown]
  - Conjunctival haemorrhage [Unknown]
